FAERS Safety Report 4913062-X (Version None)
Quarter: 2006Q1

REPORT INFORMATION
  Report Type: 
  Country: None (occurrence: None)
  Receive Date: 20060210
  Receipt Date: 20060127
  Transmission Date: 20060701
  Serious: Yes (Death)
  Sender: FDA-Public Use
  Company Number: L05-USA-03935-59

PATIENT
  Age: 31 Year
  Sex: Female

DRUGS (12)
  1. PROPRANOLOL [Suspect]
     Indication: POST-TRAUMATIC HEADACHE
  2. PROPOXYPHENE NAPSYLATE W/ ACETAMINOPHEN [Suspect]
  3. QUETIAPINE FUMARATE [Suspect]
  4. DESIPRAMINE HCL [Suspect]
  5. DULOXETINE [Suspect]
     Indication: DEPRESSION
  6. DULOXETINE [Suspect]
     Indication: POST-TRAUMATIC STRESS DISORDER
  7. NORTRIPTYLINE HCL [Suspect]
     Indication: DEPRESSION
  8. NORTRIPTYLINE HCL [Suspect]
     Indication: POST-TRAUMATIC HEADACHE
  9. NORTRIPTYLINE HCL [Suspect]
     Indication: POST-TRAUMATIC STRESS DISORDER
  10. TRILEPTAL [Suspect]
     Indication: DEPRESSION
  11. TRILEPTAL [Suspect]
     Indication: POST-TRAUMATIC STRESS DISORDER
  12. VITAMIN B-12 [Suspect]
     Indication: POST-TRAUMATIC HEADACHE

REACTIONS (5)
  - APNOEA [None]
  - BRADYCARDIA [None]
  - ELECTROCARDIOGRAM QRS COMPLEX PROLONGED [None]
  - HYPOTENSION [None]
  - LOSS OF CONSCIOUSNESS [None]
